FAERS Safety Report 8580560 (Version 2)
Quarter: 2013Q4

REPORT INFORMATION
  Report Type: Spontaneous
  Country: US (occurrence: US)
  Receive Date: 20120525
  Receipt Date: 20131121
  Transmission Date: 20140711
  Serious: Yes (Hospitalization, Disabling, Other)
  Sender: FDA-Public Use
  Company Number: US-JNJFOC-20120516909

PATIENT
  Age: 74 Year
  Sex: Female
  Weight: 56.2 kg

DRUGS (16)
  1. XARELTO [Suspect]
     Indication: THROMBOSIS PROPHYLAXIS
     Route: 048
     Dates: start: 20120425
  2. CALCIUM WITH VITAMIN D [Concomitant]
     Indication: NUTRITIONAL SUPPLEMENTATION
     Dosage: DAILY
     Route: 065
  3. FOLIC ACID [Concomitant]
     Indication: NUTRITIONAL SUPPLEMENTATION
     Dosage: DAILY
     Route: 065
  4. CENTRUM SILVER [Concomitant]
     Indication: NUTRITIONAL SUPPLEMENTATION
     Dosage: DAILY
     Route: 065
  5. TOPROL XL [Concomitant]
     Indication: BLOOD PRESSURE
     Dosage: DAILY
     Route: 065
  6. AMLODIPINE [Concomitant]
     Indication: BLOOD PRESSURE
     Dosage: DAILY
     Route: 065
  7. POTASSIUM CHLORIDE [Concomitant]
     Indication: NUTRITIONAL SUPPLEMENTATION
     Route: 065
  8. HYDROCHLOROTHIAZIDE [Concomitant]
     Indication: BLOOD PRESSURE
     Dosage: DAILY
     Route: 065
  9. LEFLUNOMIDE [Concomitant]
     Indication: RHEUMATOID ARTHRITIS
     Dosage: DAILY
     Route: 065
  10. PREDNISONE [Concomitant]
     Indication: INFLAMMATION
     Dosage: DAILY
     Route: 065
  11. ALBUTEROL [Concomitant]
     Indication: DYSPNOEA
     Dosage: 2 PUFFS 90 MCG/PRN
     Route: 065
  12. DEMEROL [Concomitant]
     Indication: PAIN
     Route: 065
  13. TRAMADOL [Concomitant]
     Indication: PAIN
     Route: 065
  14. XARELTO [Suspect]
     Indication: KNEE ARTHROPLASTY
     Route: 048
  15. XARELTO [Suspect]
     Indication: KNEE ARTHROPLASTY
     Route: 048
     Dates: start: 20120425
  16. XARELTO [Suspect]
     Indication: THROMBOSIS PROPHYLAXIS
     Route: 048

REACTIONS (2)
  - Pulmonary embolism [Recovered/Resolved]
  - Deep vein thrombosis [Unknown]
